FAERS Safety Report 25811815 (Version 1)
Quarter: 2025Q3

REPORT INFORMATION
  Report Type: Spontaneous
  Country: EU (occurrence: EU)
  Receive Date: 20250917
  Receipt Date: 20250917
  Transmission Date: 20251021
  Serious: Yes (Hospitalization, Other)
  Sender: MYLAN
  Company Number: EU-002147023-NVSC2025PL135457

PATIENT
  Age: 52 Year
  Sex: Female

DRUGS (9)
  1. ZOLEDRONIC ACID [Suspect]
     Active Substance: ZOLEDRONIC ACID
     Indication: Metastases to bone
  2. KISQALI [Suspect]
     Active Substance: RIBOCICLIB SUCCINATE
     Indication: Breast cancer metastatic
  3. LETROZOLE [Suspect]
     Active Substance: LETROZOLE
     Indication: Breast cancer metastatic
  4. GONADORELIN DIACETATE TETRAHYDRATE [Suspect]
     Active Substance: GONADORELIN DIACETATE TETRAHYDRATE
     Indication: Product used for unknown indication
  5. DOXORUBICIN [Concomitant]
     Active Substance: DOXORUBICIN
     Indication: Product used for unknown indication
  6. PACLITAXEL [Concomitant]
     Active Substance: PACLITAXEL
     Indication: Product used for unknown indication
  7. VINORELBINE [Concomitant]
     Active Substance: VINORELBINE TARTRATE
     Indication: Product used for unknown indication
  8. CARBOPLATIN [Concomitant]
     Active Substance: CARBOPLATIN
     Indication: Product used for unknown indication
  9. GEMCITABINE [Concomitant]
     Active Substance: GEMCITABINE
     Indication: Product used for unknown indication

REACTIONS (12)
  - Bacteraemia [Not Recovered/Not Resolved]
  - Breast cancer metastatic [Not Recovered/Not Resolved]
  - Malignant neoplasm progression [Not Recovered/Not Resolved]
  - Hypercalcaemia [Recovered/Resolved]
  - Exercise tolerance decreased [Unknown]
  - Hepatic enzyme increased [Unknown]
  - Ascites [Recovering/Resolving]
  - Dyspnoea [Unknown]
  - Renal failure [Not Recovered/Not Resolved]
  - Anaemia [Recovered/Resolved]
  - General physical health deterioration [Recovered/Resolved]
  - Carbohydrate antigen 15-3 increased [Not Recovered/Not Resolved]

NARRATIVE: CASE EVENT DATE: 20231001
